FAERS Safety Report 17809621 (Version 1)
Quarter: 2020Q2

REPORT INFORMATION
  Report Type: Report from Study
  Country: US (occurrence: US)
  Receive Date: 20200520
  Receipt Date: 20200520
  Transmission Date: 20200714
  Serious: Yes (Other)
  Sender: FDA-Public Use
  Company Number: US-TOLMAR, INC.-20US021387

PATIENT
  Age: 64 Year
  Sex: Male

DRUGS (2)
  1. ELIGARD [Suspect]
     Active Substance: LEUPROLIDE ACETATE
     Indication: PRODUCT USED FOR UNKNOWN INDICATION
     Dosage: UNK
     Route: 065
  2. XTANDI [Suspect]
     Active Substance: ENZALUTAMIDE
     Indication: PROSTATE CANCER
     Dosage: 40 MG, QID
     Route: 048
     Dates: start: 20181108

REACTIONS (7)
  - Neuralgia [Unknown]
  - Pain in extremity [Unknown]
  - Blood urine present [Unknown]
  - Arthralgia [Unknown]
  - Neuropathy peripheral [Unknown]
  - Fatigue [Unknown]
  - Pelvic pain [Unknown]

NARRATIVE: CASE EVENT DATE: 201901
